FAERS Safety Report 9708475 (Version 1)
Quarter: 2013Q4

REPORT INFORMATION
  Report Type: Spontaneous
  Country: US (occurrence: US)
  Receive Date: 20131125
  Receipt Date: 20131125
  Transmission Date: 20140711
  Serious: No
  Sender: FDA-Public Use
  Company Number: US-TEVA-446369USA

PATIENT
  Sex: Female

DRUGS (2)
  1. PROAIR HFA [Suspect]
     Indication: OROPHARYNGEAL PAIN
     Route: 055
  2. ANTIBIOTICS [Suspect]

REACTIONS (5)
  - Device malfunction [Recovered/Resolved]
  - Drug effect decreased [Unknown]
  - Rash [Unknown]
  - Feeling hot [Unknown]
  - Off label use [Recovered/Resolved]
